FAERS Safety Report 15017007 (Version 1)
Quarter: 2018Q2

REPORT INFORMATION
  Report Type: Spontaneous
  Country: NL (occurrence: NL)
  Receive Date: 20180615
  Receipt Date: 20180615
  Transmission Date: 20180711
  Serious: Yes (Other)
  Sender: FDA-Public Use
  Company Number: PHHY2018NL022073

PATIENT

DRUGS (1)
  1. NILOTINIB [Suspect]
     Active Substance: NILOTINIB
     Indication: SYNOVITIS
     Dosage: 400 MG, BID
     Route: 048

REACTIONS (2)
  - Skin toxicity [Unknown]
  - Product use in unapproved indication [Unknown]
